FAERS Safety Report 4922402-7 (Version None)
Quarter: 2006Q1

REPORT INFORMATION
  Report Type: 
  Country: None (occurrence: None)
  Receive Date: 20060224
  Receipt Date: 20050930
  Transmission Date: 20060701
  Serious: Yes (Death, Hospitalization, Other)
  Sender: FDA-Public Use
  Company Number: PR-MERCK-0510USA00845

PATIENT
  Age: 69 Year
  Sex: Female
  Weight: 102 kg

DRUGS (2)
  1. VIOXX [Suspect]
     Indication: ARTHRITIS
     Route: 048
     Dates: start: 20030101, end: 20041001
  2. VIOXX [Suspect]
     Route: 048

REACTIONS (22)
  - ANGINA PECTORIS [None]
  - ANGIOPATHY [None]
  - ARRHYTHMIA [None]
  - ASTHMA [None]
  - BLADDER DISORDER [None]
  - CARDIAC DISORDER [None]
  - CEREBROVASCULAR ACCIDENT [None]
  - CHOLELITHIASIS [None]
  - DIVERTICULUM [None]
  - HEPATOMEGALY [None]
  - KIDNEY INFECTION [None]
  - LACUNAR INFARCTION [None]
  - MONARTHRITIS [None]
  - MYOCARDIAL INFARCTION [None]
  - NEPHROLITHIASIS [None]
  - OBESITY [None]
  - ORGAN FAILURE [None]
  - PULMONARY EMBOLISM [None]
  - PYELONEPHRITIS ACUTE [None]
  - SINUSITIS [None]
  - THROMBOSIS [None]
  - URINARY TRACT INFECTION [None]
